FAERS Safety Report 11034263 (Version 2)
Quarter: 2015Q2

REPORT INFORMATION
  Report Type: Spontaneous
  Country: US (occurrence: US)
  Receive Date: 20150415
  Receipt Date: 20150525
  Transmission Date: 20150821
  Serious: Yes (Other)
  Sender: FDA-Public Use
  Company Number: US-JNJFOC-20131008994

PATIENT
  Age: 82 Year
  Sex: Male
  Weight: 99.79 kg

DRUGS (2)
  1. XARELTO [Suspect]
     Active Substance: RIVAROXABAN
     Indication: ATRIAL FIBRILLATION
     Route: 048
     Dates: start: 20130110
  2. XARELTO [Suspect]
     Active Substance: RIVAROXABAN
     Indication: CEREBROVASCULAR ACCIDENT PROPHYLAXIS
     Route: 048
     Dates: start: 20130110

REACTIONS (5)
  - Epistaxis [Recovering/Resolving]
  - Inappropriate schedule of drug administration [Unknown]
  - Haemorrhage [Unknown]
  - Scratch [Unknown]
  - Contusion [Unknown]

NARRATIVE: CASE EVENT DATE: 201309
